FAERS Safety Report 8061975-5 (Version None)
Quarter: 2012Q1

REPORT INFORMATION
  Report Type: 
  Country: None (occurrence: None)
  Receive Date: 20120117
  Receipt Date: 20120109
  Transmission Date: 20120608
  Serious: Yes (Hospitalization, Other)
  Sender: FDA-Public Use
  Company Number: 2012MA000512

PATIENT
  Age: 35 Year
  Sex: Female

DRUGS (4)
  1. CYCLOPHOSPHAMIDE [Concomitant]
  2. NEUPOGEN [Concomitant]
  3. PACLITAXEL [Suspect]
     Indication: BREAST CANCER
     Dosage: QW
  4. DOXORUBICIN HCL [Concomitant]

REACTIONS (5)
  - CAESAREAN SECTION [None]
  - OLIGOHYDRAMNIOS [None]
  - NEOPLASM PROGRESSION [None]
  - FOETAL EXPOSURE DURING PREGNANCY [None]
  - BREAST CANCER [None]
